FAERS Safety Report 16521549 (Version 5)
Quarter: 2020Q1

REPORT INFORMATION
  Report Type: Spontaneous
  Country: JP (occurrence: JP)
  Receive Date: 20190702
  Receipt Date: 20200102
  Transmission Date: 20200409
  Serious: Yes (Hospitalization)
  Sender: FDA-Public Use
  Company Number: JP-JNJFOC-20190634702

PATIENT
  Age: 6 Decade
  Sex: Male

DRUGS (1)
  1. INVEGA [Suspect]
     Active Substance: PALIPERIDONE
     Indication: SCHIZOPHRENIA
     Route: 048
     Dates: end: 20190620

REACTIONS (1)
  - Humerus fracture [Unknown]

NARRATIVE: CASE EVENT DATE: 20190618
